FAERS Safety Report 7007228-5 (Version None)
Quarter: 2010Q3

REPORT INFORMATION
  Report Type: 
  Country: None (occurrence: None)
  Receive Date: 20100916
  Receipt Date: 20100903
  Transmission Date: 20110219
  Serious: Yes (Other)
  Sender: FDA-Public Use
  Company Number: 2010SP042733

PATIENT
  Age: 46 Year
  Sex: Male

DRUGS (7)
  1. SAPHRIS [Suspect]
     Indication: SCHIZOAFFECTIVE DISORDER
     Dosage: 5 MG;BID;SL
     Route: 060
     Dates: start: 20100630, end: 20100709
  2. CYMBALTA [Concomitant]
  3. SEROQUEL [Concomitant]
  4. FLONASE [Concomitant]
  5. METOPROLOL TARTRATE [Concomitant]
  6. FERROUS SULFATE TAB [Concomitant]
  7. CARDIZEM [Concomitant]

REACTIONS (7)
  - CONDITION AGGRAVATED [None]
  - DELUSION [None]
  - DRUG INEFFECTIVE [None]
  - HALLUCINATION [None]
  - PARADOXICAL DRUG REACTION [None]
  - PARANOIA [None]
  - SUICIDAL IDEATION [None]
